FAERS Safety Report 8590520-0 (Version None)
Quarter: 2012Q3

REPORT INFORMATION
  Report Type: 
  Country: None (occurrence: None)
  Receive Date: 20120813
  Receipt Date: 20120731
  Transmission Date: 20120928
  Serious: Yes (Other)
  Sender: FDA-Public Use
  Company Number: US-COVIDIEN/TYCO HEALTHCARE/MALLINCKRODT-T201203041

PATIENT
  Age: 51 Year
  Sex: Female

DRUGS (2)
  1. METHADOSE [Suspect]
     Dosage: UNK
  2. FENTANYL CITRATE [Concomitant]
     Indication: FIBROMYALGIA
     Dosage: UNK

REACTIONS (2)
  - LEUKOENCEPHALOPATHY [None]
  - OVERDOSE [None]
